FAERS Safety Report 8849829 (Version 4)
Quarter: 2012Q4

REPORT INFORMATION
  Report Type: 
  Country: JP (occurrence: JP)
  Receive Date: 20121019
  Receipt Date: 20121116
  Transmission Date: 20130627
  Serious: Yes (Hospitalization, Other)
  Sender: FDA-Public Use
  Company Number: JP-OTSUKA-JP-2012-16584

PATIENT
  Age: 90 Year
  Sex: Female
  Weight: 40 kg

DRUGS (7)
  1. SAMSCA [Suspect]
     Indication: OEDEMA
     Dosage: 7.5 Mg milligram(s), qd
     Route: 048
     Dates: start: 20120911, end: 20121011
  2. URSO [Concomitant]
     Indication: CHOLELITHIASIS
     Dosage: 200 Mg milligram(s), tid
     Route: 048
     Dates: start: 20120906, end: 20121029
  3. GASTER [Concomitant]
     Indication: GASTRIC DISORDER
     Dosage: 20 Mg milligram(s), bid
     Route: 048
     Dates: start: 20120906, end: 20121029
  4. BLOPRESS [Concomitant]
     Indication: BLOOD PRESSURE
     Dosage: 8 Mg milligram(s), qd
     Route: 048
     Dates: start: 20120906, end: 20121029
  5. SEROQUEL [Concomitant]
     Indication: RESTLESSNESS
     Dosage: 25 Mg milligram(s), bid
     Route: 048
     Dates: start: 20120906, end: 20121029
  6. LASIX [Concomitant]
     Indication: OEDEMA
     Dosage: 20 Mg milligram(s), qd
     Route: 042
     Dates: start: 20120910, end: 20120927
  7. DIART [Concomitant]
     Indication: OEDEMA
     Dosage: 30 Mg milligram(s), qd
     Route: 048
     Dates: start: 20120928, end: 20121029

REACTIONS (2)
  - Interstitial lung disease [Recovering/Resolving]
  - Blood creatinine increased [None]
